FAERS Safety Report 18756121 (Version 1)
Quarter: 2021Q1

REPORT INFORMATION
  Report Type: Spontaneous
  Country: US (occurrence: US)
  Receive Date: 20210116
  Receipt Date: 20210116
  Transmission Date: 20210419
  Serious: Yes (Disabling)
  Sender: FDA-Public Use
  Company Number: None

PATIENT
  Age: 30 Year
  Sex: Female
  Weight: 98.1 kg

DRUGS (2)
  1. VIIBRYD [Suspect]
     Active Substance: VILAZODONE HYDROCHLORIDE
     Indication: ANXIETY
     Dates: start: 20200815, end: 20201123
  2. VIIBRYD [Suspect]
     Active Substance: VILAZODONE HYDROCHLORIDE
     Indication: DEPRESSION
     Dates: start: 20200815, end: 20201123

REACTIONS (8)
  - Paraesthesia [None]
  - Joint swelling [None]
  - Gait disturbance [None]
  - Arthralgia [None]
  - Joint effusion [None]
  - Hypoaesthesia [None]
  - Periarthritis [None]
  - Pain in extremity [None]

NARRATIVE: CASE EVENT DATE: 20200826
